FAERS Safety Report 4450552-0 (Version None)
Quarter: 2004Q3

REPORT INFORMATION
  Report Type: 
  Country: None (occurrence: None)
  Receive Date: 20040914
  Receipt Date: 20040830
  Transmission Date: 20050211
  Serious: Yes (Hospitalization)
  Sender: FDA-Public Use
  Company Number: 2004S1002566

PATIENT
  Age: 60 Year
  Sex: Female

DRUGS (9)
  1. MAXZIDE [Suspect]
     Dates: start: 20040524, end: 20040605
  2. TOLTERODINE TARTRATE [Concomitant]
  3. LEVOTHYROXINE SODIUM [Concomitant]
  4. VENLAFAXINE HCL [Concomitant]
  5. METOPROLOL [Concomitant]
  6. RALOXIFENE HCL [Concomitant]
  7. CARBAMAZEPINE [Concomitant]
  8. AMANTADINE HCL [Concomitant]
  9. SPIRONOLACTONE [Concomitant]

REACTIONS (14)
  - BALANCE DISORDER [None]
  - COLD SWEAT [None]
  - CONDITION AGGRAVATED [None]
  - DEHYDRATION [None]
  - DIFFICULTY IN WALKING [None]
  - DYSGRAPHIA [None]
  - DYSKINESIA [None]
  - IMPAIRED DRIVING ABILITY [None]
  - INJECTION SITE ERYTHEMA [None]
  - MEDICATION ERROR [None]
  - MULTIPLE SCLEROSIS [None]
  - OEDEMA PERIPHERAL [None]
  - RENAL FAILURE ACUTE [None]
  - SPEECH DISORDER [None]
